FAERS Safety Report 17682676 (Version 1)
Quarter: 2020Q2

REPORT INFORMATION
  Report Type: Spontaneous
  Country: US (occurrence: US)
  Receive Date: 20200419
  Receipt Date: 20200419
  Transmission Date: 20200714
  Serious: No
  Sender: FDA-Public Use
  Company Number: US-GILEAD-2020-0459464

PATIENT
  Age: 62 Year
  Sex: Male

DRUGS (1)
  1. EPCLUSA [Suspect]
     Active Substance: SOFOSBUVIR\VELPATASVIR
     Indication: HEPATITIS C
     Dosage: 400/100, UNK, QD
     Route: 065
     Dates: start: 20200414

REACTIONS (1)
  - Headache [Unknown]

NARRATIVE: CASE EVENT DATE: 20200415
